FAERS Safety Report 9374437 (Version 2)
Quarter: 2014Q2

REPORT INFORMATION
  Report Type: Report from Study
  Country: DE (occurrence: DE)
  Receive Date: 20130628
  Receipt Date: 20140414
  Transmission Date: 20141212
  Serious: Yes (Hospitalization)
  Sender: FDA-Public Use
  Company Number: DE-ROCHE-1242165

PATIENT
  Age: 64 Year
  Sex: Female
  Weight: 96 kg

DRUGS (2)
  1. VEMURAFENIB [Suspect]
     Indication: METASTATIC MALIGNANT MELANOMA
     Dosage: MOST RECENT DOSE ON 19/JUN/2013
     Route: 048
     Dates: start: 20130605
  2. VEMURAFENIB [Suspect]
     Dosage: DATE OF RECENT DOSE PRIOR TO SAE: 10/SEP/2013
     Route: 048
     Dates: start: 20130605

REACTIONS (2)
  - Drug eruption [Recovered/Resolved]
  - Blood bilirubin increased [Unknown]
